FAERS Safety Report 11758638 (Version 1)
Quarter: 2015Q4

REPORT INFORMATION
  Report Type: Spontaneous
  Country: US (occurrence: None)
  Receive Date: 20151119
  Receipt Date: 20151119
  Transmission Date: 20160304
  Serious: Yes (Disabling, Other)
  Sender: FDA-Public Use
  Company Number: None

PATIENT
  Age: 51 Year
  Sex: Female
  Weight: 83.92 kg

DRUGS (8)
  1. LISINPRIL [Concomitant]
  2. SYSTANE LUBRICANT [Suspect]
     Active Substance: POLYETHYLENE GLYCOL 400\PROPYLENE GLYCOL
     Indication: EYE LUBRICATION THERAPY
     Route: 047
     Dates: start: 20151118, end: 20151118
  3. ADDERALL XR [Concomitant]
     Active Substance: AMPHETAMINE ASPARTATE\AMPHETAMINE SULFATE\DEXTROAMPHETAMINE SACCHARATE\DEXTROAMPHETAMINE SULFATE
  4. FLUOXETINE [Concomitant]
     Active Substance: FLUOXETINE HYDROCHLORIDE
  5. VITAMIN D3 [Concomitant]
     Active Substance: CHOLECALCIFEROL
  6. LORATIDINE [Concomitant]
     Active Substance: LORATADINE
  7. CENTRUM SILVER [Concomitant]
     Active Substance: MINERALS\VITAMINS
  8. PANTOPRAZOLE SODIUM. [Concomitant]
     Active Substance: PANTOPRAZOLE SODIUM

REACTIONS (8)
  - Vision blurred [None]
  - Eye pain [None]
  - Ocular hyperaemia [None]
  - Lacrimation increased [None]
  - Middle ear effusion [None]
  - Rhinorrhoea [None]
  - Eye irritation [None]
  - Rhinalgia [None]

NARRATIVE: CASE EVENT DATE: 20151118
